FAERS Safety Report 9431763 (Version 2)
Quarter: 2013Q3

REPORT INFORMATION
  Report Type: Report from Study
  Country: US (occurrence: US)
  Receive Date: 20130731
  Receipt Date: 20130904
  Transmission Date: 20140515
  Serious: Yes (Hospitalization)
  Sender: FDA-Public Use
  Company Number: US-009507513-1307USA014547

PATIENT
  Age: 80 Year
  Sex: Female
  Weight: 70.3 kg

DRUGS (12)
  1. VORINOSTAT [Suspect]
     Indication: DIFFUSE LARGE B-CELL LYMPHOMA
     Dosage: CYCLE 1, 400 MG, QD ON DAYS 1-5
     Route: 048
     Dates: start: 20130702, end: 20130706
  2. VORINOSTAT [Suspect]
     Dosage: CYCLE 3, 400 MG, QD ON DAYS 1-5
     Route: 048
     Dates: start: 20130813, end: 20130817
  3. RITUXIMAB [Suspect]
     Indication: DIFFUSE LARGE B-CELL LYMPHOMA
     Dosage: 375 MG/M2, ON DAY 3, R-CHOP DELAYED ONE DAY DUE TO HOLIDAY
     Route: 042
     Dates: start: 20130705, end: 20130705
  4. RITUXIMAB [Suspect]
     Dosage: 375 MG/M2, ON DAY 3,
     Route: 042
     Dates: start: 20130815, end: 20130815
  5. CYCLOPHOSPHAMIDE [Suspect]
     Indication: DIFFUSE LARGE B-CELL LYMPHOMA
     Dosage: 750 MG/M2, IV INFUSION OVER 30-60 MINUTES ON DAY 3, R-CHOP DELAYED ONE DAY DUE TO HOLIDAY
     Route: 042
     Dates: start: 20130705, end: 20130705
  6. CYCLOPHOSPHAMIDE [Suspect]
     Dosage: 750 MG/M2, IV INFUSION OVER 30-60 MINUTES ON DAY 3,
     Route: 042
     Dates: start: 20130815, end: 20130815
  7. DOXORUBICIN [Suspect]
     Indication: DIFFUSE LARGE B-CELL LYMPHOMA
     Dosage: 50 MG/M2, IVP ON DAY 3, R-CHOP DELAYED ONE DAY DUE TO HOLIDAY
     Route: 042
     Dates: start: 20130705, end: 20130705
  8. DOXORUBICIN [Suspect]
     Dosage: 50 MG/M2, IVP ON DAY 3
     Route: 042
     Dates: start: 20130815, end: 20130815
  9. VINCRISTINE [Suspect]
     Indication: DIFFUSE LARGE B-CELL LYMPHOMA
     Dosage: 1.4 MG/M2, IVP ON DAY 3, R-CHOP DELAYED ONE DAY DUE TO HOLIDAY
     Route: 042
     Dates: start: 20130705, end: 20130705
  10. VINCRISTINE [Suspect]
     Dosage: 1.4 MG/M2, IVP ON DAY 3
     Route: 042
     Dates: start: 20130815, end: 20130815
  11. PREDNISONE [Suspect]
     Indication: DIFFUSE LARGE B-CELL LYMPHOMA
     Dosage: 100 MG, QD ON DAYS 3-7, R-CHOP DELAYED ONE DAY DUE TO HOLIDAY
     Route: 048
     Dates: start: 20130705, end: 20130709
  12. PREDNISONE [Suspect]
     Dosage: 100 MG, QD ON DAYS 3-7
     Route: 048
     Dates: start: 20130815, end: 20130819

REACTIONS (3)
  - Febrile neutropenia [Recovered/Resolved]
  - Febrile neutropenia [Recovered/Resolved]
  - Syncope [Recovered/Resolved]
